FAERS Safety Report 7521242-2 (Version None)
Quarter: 2011Q2

REPORT INFORMATION
  Report Type: 
  Country: None (occurrence: None)
  Receive Date: 20110603
  Receipt Date: 20101213
  Transmission Date: 20111010
  Serious: Yes (Life-Threatening, Hospitalization)
  Sender: FDA-Public Use
  Company Number: JP-BAYER-201015446BYL

PATIENT
  Age: 81 Year
  Sex: Male
  Weight: 63 kg

DRUGS (6)
  1. CONIEL [Concomitant]
     Dosage: DAILY DOSE 8 MG
     Route: 048
     Dates: start: 20060910
  2. LASIX [Concomitant]
     Dosage: DAILY DOSE 20 MG
     Route: 048
     Dates: start: 20080616
  3. RABEPRAZOLE SODIUM [Concomitant]
     Dosage: DAILY DOSE 10 MG
     Route: 048
     Dates: start: 20060912
  4. PASTARON [Concomitant]
     Dosage: UNK
     Route: 061
     Dates: start: 20101006, end: 20101017
  5. NEXAVAR [Suspect]
     Indication: HEPATIC NEOPLASM MALIGNANT
     Dosage: 400 MG, BID
     Route: 048
     Dates: start: 20101006, end: 20101017
  6. LEVOTHYROXINE SODIUM [Concomitant]
     Indication: HYPOTHYROIDISM
     Dosage: DAILY DOSE 50 ?G
     Route: 048
     Dates: start: 20080227

REACTIONS (5)
  - MALAISE [None]
  - DIZZINESS [None]
  - DECREASED APPETITE [None]
  - THROMBOCYTOPENIA [None]
  - DISSEMINATED INTRAVASCULAR COAGULATION [None]
